FAERS Safety Report 5487865-X (Version None)
Quarter: 2007Q4

REPORT INFORMATION
  Report Type: 
  Country: None (occurrence: None)
  Receive Date: 20071017
  Receipt Date: 20071009
  Transmission Date: 20080405
  Serious: Yes (Other)
  Sender: FDA-Public Use
  Company Number: US-WYE-H00579807

PATIENT
  Sex: Male

DRUGS (3)
  1. AMIODARONE [Suspect]
     Dosage: DOSE UNKNOWN
     Route: 065
  2. COUMADIN [Concomitant]
     Dosage: DOSE UNKNOWN
     Route: 065
  3. KEPPRA [Suspect]
     Indication: PARTIAL SEIZURES
     Dosage: DOSE UNKNOWN
     Route: 065

REACTIONS (2)
  - ANAEMIA [None]
  - PLATELET COUNT DECREASED [None]
